FAERS Safety Report 19264244 (Version 1)
Quarter: 2021Q2

REPORT INFORMATION
  Report Type: Spontaneous
  Country: US (occurrence: US)
  Receive Date: 20210515
  Receipt Date: 20210515
  Transmission Date: 20210717
  Serious: Yes (Disabling)
  Sender: FDA-Public Use
  Company Number: None

PATIENT
  Age: 67 Year
  Sex: Female
  Weight: 69.75 kg

DRUGS (21)
  1. GINKGO BILOBA [Concomitant]
     Active Substance: GINKGO
  2. LISINOPRIL. [Concomitant]
     Active Substance: LISINOPRIL
  3. ALFALFA [Concomitant]
     Active Substance: ALFALFA
  4. LYSINE [Concomitant]
     Active Substance: LYSINE
  5. NIFEDIPINE. [Concomitant]
     Active Substance: NIFEDIPINE
  6. CALCIUM W/D [Concomitant]
  7. EVENING PRIMROSE OIL [Concomitant]
     Active Substance: EVENING PRIMROSE OIL\HERBALS
  8. COENZYME Q10 [Concomitant]
     Active Substance: DIETARY SUPPLEMENT\UBIDECARENONE
  9. LACTOBACILLUS ACIDOPHILUS [Concomitant]
     Active Substance: LACTOBACILLUS ACIDOPHILUS
  10. PRAVASTATIN SODIUM TAB 10 MG [AMEL] [Suspect]
     Active Substance: PRAVASTATIN SODIUM
     Indication: BLOOD CHOLESTEROL INCREASED
     Dosage: ?          QUANTITY:1 TABLET(S);?
     Route: 048
  11. CLONIDINE HYDROCHLORIDE. [Concomitant]
     Active Substance: CLONIDINE HYDROCHLORIDE
  12. OMEGA 3 [Concomitant]
     Active Substance: OMEGA-3 FATTY ACIDS
  13. BIOTIN [Concomitant]
     Active Substance: BIOTIN
  14. HYDROCHLOROTHIAZIDE. [Concomitant]
     Active Substance: HYDROCHLOROTHIAZIDE
  15. VITAMIN B COMPLEX [Concomitant]
     Active Substance: CYANOCOBALAMIN\DEXPANTHENOL\NIACINAMIDE\PYRIDOXINE HYDROCHLORIDE\RIBOFLAVIN 5^-PHOSPHATE SODIUM\THIAMINE HYDROCHLORIDE\VITAMIN B COMPLEX
  16. VITAMIN D3 [Concomitant]
     Active Substance: CHOLECALCIFEROL
  17. ZINC. [Concomitant]
     Active Substance: ZINC
  18. ECHINACEA W/GOLDENSEAL [Concomitant]
  19. RED YEAST RICE [Concomitant]
     Active Substance: DIETARY SUPPLEMENT
  20. VITAMIN E [Concomitant]
     Active Substance: .ALPHA.-TOCOPHEROL
  21. VITAMIN B12 [Concomitant]
     Active Substance: CYANOCOBALAMIN

REACTIONS (3)
  - Exercise tolerance decreased [None]
  - Myalgia [None]
  - Arthralgia [None]

NARRATIVE: CASE EVENT DATE: 20210515
